FAERS Safety Report 8362883-2 (Version None)
Quarter: 2012Q2

REPORT INFORMATION
  Report Type: 
  Country: None (occurrence: None)
  Receive Date: 20120514
  Receipt Date: 20120430
  Transmission Date: 20120825
  Serious: Yes (Other)
  Sender: FDA-Public Use
  Company Number: CIP11001627

PATIENT
  Age: 59 Year
  Sex: Female
  Weight: 84.1 kg

DRUGS (15)
  1. CALCIUM CARBONATE [Concomitant]
  2. PREVACID [Concomitant]
  3. VITAMIN D [Concomitant]
  4. MULTIVITAMIN/00831701/ (VITAMINS NOS) [Concomitant]
  5. CELLSEPT (MYCOPHENOLATE MOFETIL) [Concomitant]
  6. FOSAMAX [Suspect]
     Indication: OSTEOPOROSIS PROPHYLAXIS
     Dosage: 10 MG, DAILY, ORAL, UNK UNK, UNKNOWN, ORAL
     Route: 048
     Dates: start: 19980101, end: 19980201
  7. FOSAMAX [Suspect]
     Indication: OSTEOPOROSIS PROPHYLAXIS
     Dosage: 10 MG, DAILY, ORAL, UNK UNK, UNKNOWN, ORAL
     Route: 048
     Dates: start: 19961203, end: 19971201
  8. WARFARIN SODIUM [Concomitant]
  9. ALENDRONATE SODIUM [Suspect]
     Indication: OSTEOPOROSIS PROPHYLAXIS
     Dosage: 70 MG, ORAL, UNKNOWN, ORAL
     Route: 048
     Dates: end: 19980101
  10. ALENDRONATE SODIUM [Suspect]
     Indication: OSTEOPOROSIS PROPHYLAXIS
     Dosage: 70 MG, ORAL, UNKNOWN, ORAL
     Route: 048
     Dates: start: 20080218, end: 20110301
  11. PREDNISONE TAB [Concomitant]
  12. FLUORIDENT (SODIUM FLUORIDE) [Concomitant]
  13. ACTONEL [Suspect]
     Indication: OSTEOPOROSIS PROPHYLAXIS
     Dosage: 5 MG DAILY, ORAL
     Route: 048
     Dates: start: 20030501, end: 20040601
  14. FOSAMAX [Suspect]
     Indication: OSTEOPOROSIS PROPHYLAXIS
     Dosage: 70 MG WEEKLY, ORAL
     Route: 048
     Dates: start: 20010831, end: 20080101
  15. DECADRON [Concomitant]

REACTIONS (24)
  - DRY MOUTH [None]
  - LOOSE TOOTH [None]
  - SALIVARY HYPERSECRETION [None]
  - DENTAL CARIES [None]
  - PRIMARY SEQUESTRUM [None]
  - ACTINOMYCOSIS [None]
  - BONE LOSS [None]
  - GINGIVAL DISORDER [None]
  - ORAL DISCHARGE [None]
  - IMPAIRED HEALING [None]
  - ORAL DISORDER [None]
  - DENTAL PLAQUE [None]
  - PERIODONTAL DISEASE [None]
  - OSTEOMYELITIS CHRONIC [None]
  - TOOTH DISCOLOURATION [None]
  - TOOTH DISORDER [None]
  - SENSITIVITY OF TEETH [None]
  - GINGIVAL SWELLING [None]
  - OSTEONECROSIS OF JAW [None]
  - HYPOAESTHESIA ORAL [None]
  - OSTEITIS [None]
  - INFLAMMATION [None]
  - TOOTHACHE [None]
  - TOOTH FRACTURE [None]
